FAERS Safety Report 7328706-5 (Version None)
Quarter: 2011Q1

REPORT INFORMATION
  Report Type: 
  Country: None (occurrence: None)
  Receive Date: 20110222
  Receipt Date: 20110217
  Transmission Date: 20110831
  Serious: Yes (Death, Hospitalization)
  Sender: FDA-Public Use
  Company Number: 2011SP007536

PATIENT
  Age: 69 Year
  Sex: Male
  Weight: 63.7 kg

DRUGS (10)
  1. MAGNESIUM OXIDE [Concomitant]
  2. NIMOTOP [Concomitant]
  3. TEMOZOLOMIDE [Suspect]
     Indication: GLIOBLASTOMA MULTIFORME
     Dosage: 120 MG; PO
     Route: 048
     Dates: start: 20081115, end: 20090704
  4. TOPAMAX [Concomitant]
  5. DEXAMETHASONE [Concomitant]
  6. ALBIS [Concomitant]
  7. PLETAL [Concomitant]
  8. GLIATILIN [Concomitant]
  9. TRENTAL [Concomitant]
  10. XANAX [Concomitant]

REACTIONS (2)
  - PNEUMONIA [None]
  - RADIATION NECROSIS [None]
